FAERS Safety Report 10076607 (Version 2)
Quarter: 2014Q2

REPORT INFORMATION
  Report Type: Spontaneous
  Country: BR (occurrence: BR)
  Receive Date: 20140414
  Receipt Date: 20140512
  Transmission Date: 20141212
  Serious: Yes (Life-Threatening, Other)
  Sender: FDA-Public Use
  Company Number: PHHY2014BR044707

PATIENT
  Sex: Male
  Weight: 55 kg

DRUGS (8)
  1. STALEVO [Suspect]
     Indication: PARKINSON^S DISEASE
     Dosage: 3 DF, UNK
     Route: 048
  2. STALEVO [Suspect]
     Dosage: 4 DF, UNK
     Route: 048
  3. STALEVO [Suspect]
     Dosage: 5 DF, UNK
     Route: 048
  4. SOMALGIN [Concomitant]
     Dosage: 1 DF, AFTER LUNCH
  5. ALOIS [Concomitant]
     Indication: PROPHYLAXIS
     Dosage: UNK
  6. ROSUVASTATIN [Concomitant]
     Dosage: UNK
  7. CLOPIDOGREL [Concomitant]
     Dosage: UNK
  8. ALMEIDA [Concomitant]
     Dosage: UNK

REACTIONS (5)
  - Apparent death [Unknown]
  - Cerebrovascular accident [Recovered/Resolved]
  - Asthenia [Recovered/Resolved]
  - Presyncope [Unknown]
  - Constipation [Recovered/Resolved]
